FAERS Safety Report 5344162-0 (Version None)
Quarter: 2007Q2

REPORT INFORMATION
  Report Type: 
  Country: None (occurrence: None)
  Receive Date: 20070604
  Receipt Date: 20070522
  Transmission Date: 20071010
  Serious: Yes (Disabling)
  Sender: FDA-Public Use
  Company Number: GB-ROCHE-493086

PATIENT
  Age: 65 Year
  Sex: Female
  Weight: 97 kg

DRUGS (4)
  1. PEG-INTERFERON ALFA NOS [Suspect]
     Indication: DRUG USE FOR UNKNOWN INDICATION
     Route: 058
     Dates: start: 20060803, end: 20070410
  2. PEG-INTERFERON ALFA NOS [Suspect]
     Route: 058
     Dates: start: 20070417
  3. LANSOPRAZOLE [Concomitant]
     Route: 048
     Dates: start: 20060301
  4. ATENOLOL [Concomitant]
     Indication: HYPERTENSION
     Route: 048
     Dates: start: 20060101

REACTIONS (1)
  - RETINAL DETACHMENT [None]
